FAERS Safety Report 6847244-7 (Version None)
Quarter: 2010Q2

REPORT INFORMATION
  Report Type: 
  Country: None (occurrence: None)
  Receive Date: 20100629
  Receipt Date: 20100504
  Transmission Date: 20101027
  Serious: No
  Sender: FDA-Public Use
  Company Number: US-WYE-H15104310

PATIENT
  Age: 19 Year
  Sex: Female
  Weight: 96.7 kg

DRUGS (2)
  1. PRISTIQ [Suspect]
     Indication: CRYING
     Dosage: 50 MG 1X PER 1 DAY, ORAL
     Route: 048
     Dates: start: 20100503
  2. PRISTIQ [Suspect]
     Indication: EMOTIONAL DISORDER
     Dosage: 50 MG 1X PER 1 DAY, ORAL
     Route: 048
     Dates: start: 20100503

REACTIONS (3)
  - INSOMNIA [None]
  - NAUSEA [None]
  - TREMOR [None]
